FAERS Safety Report 18747993 (Version 1)
Quarter: 2021Q1

REPORT INFORMATION
  Report Type: Spontaneous
  Country: US (occurrence: US)
  Receive Date: 20210115
  Receipt Date: 20210115
  Transmission Date: 20210419
  Serious: Yes (Other)
  Sender: FDA-Public Use
  Company Number: US-AMERICAN REGENT INC-2021000146

PATIENT
  Age: 50 Year
  Sex: Female

DRUGS (2)
  1. SOLU?MEDROL [Concomitant]
     Active Substance: METHYLPREDNISOLONE SODIUM SUCCINATE
     Indication: PREMEDICATION
     Dosage: UNK
     Route: 065
     Dates: start: 20210107, end: 20210107
  2. VENOFER [Suspect]
     Active Substance: IRON SUCROSE
     Indication: PRODUCT USED FOR UNKNOWN INDICATION
     Dosage: 500 MILLIGRAM, SINGLE
     Route: 042
     Dates: start: 20210107, end: 20210107

REACTIONS (12)
  - Pain [Not Recovered/Not Resolved]
  - Blood pressure decreased [Recovering/Resolving]
  - Dysmenorrhoea [Recovering/Resolving]
  - Dizziness [Recovering/Resolving]
  - Cold sweat [Recovering/Resolving]
  - Insomnia [Not Recovered/Not Resolved]
  - Feeling abnormal [Recovering/Resolving]
  - Burning sensation [Not Recovered/Not Resolved]
  - Paraesthesia [Not Recovered/Not Resolved]
  - Neuropathy peripheral [Not Recovered/Not Resolved]
  - Hyperhidrosis [Recovering/Resolving]
  - Diarrhoea [Recovering/Resolving]

NARRATIVE: CASE EVENT DATE: 202101
